FAERS Safety Report 16692549 (Version 4)
Quarter: 2022Q1

REPORT INFORMATION
  Report Type: Report from Study
  Country: US (occurrence: US)
  Receive Date: 20190812
  Receipt Date: 20220107
  Transmission Date: 20220423
  Serious: Yes (Hospitalization)
  Sender: FDA-Public Use
  Company Number: US-PFIZER INC-2019335723

PATIENT
  Age: 20 Month
  Sex: Male
  Weight: 12.4 kg

DRUGS (5)
  1. TEMSIROLIMUS [Suspect]
     Active Substance: TEMSIROLIMUS
     Indication: Embryonal rhabdomyosarcoma
     Dosage: UNK UNK, CYCLIC
     Route: 042
     Dates: start: 20190529, end: 20190619
  2. IRINOTECAN HYDROCHLORIDE [Suspect]
     Active Substance: IRINOTECAN HYDROCHLORIDE
     Indication: Embryonal rhabdomyosarcoma
     Dosage: UNK UNK, CYCLIC
     Route: 042
     Dates: start: 20190613
  3. VINCRISTINE SULFATE [Suspect]
     Active Substance: VINCRISTINE SULFATE
     Indication: Embryonal rhabdomyosarcoma
     Dosage: UNK UNK, CYCLIC
     Route: 042
     Dates: start: 20190523, end: 20190619
  4. CYCLOPHOSPHAMIDE [Suspect]
     Active Substance: CYCLOPHOSPHAMIDE
     Indication: Embryonal rhabdomyosarcoma
     Dosage: UNK UNK, CYCLIC
     Route: 042
     Dates: start: 20190523
  5. DACTINOMYCIN [Suspect]
     Active Substance: DACTINOMYCIN
     Indication: Embryonal rhabdomyosarcoma
     Dosage: UNK UNK, CYCLIC
     Route: 042
     Dates: start: 20190523

REACTIONS (7)
  - Pneumonia [Recovered/Resolved]
  - Febrile neutropenia [Recovered/Resolved]
  - Stomatitis [Recovered/Resolved]
  - Colitis [Recovered/Resolved]
  - Abdominal infection [Recovered/Resolved]
  - Peripheral motor neuropathy [Recovered/Resolved]
  - Upper respiratory tract infection [Recovered/Resolved]

NARRATIVE: CASE EVENT DATE: 20190625
